FAERS Safety Report 9655089 (Version 2)
Quarter: 2013Q4

REPORT INFORMATION
  Report Type: Spontaneous
  Country: US (occurrence: US)
  Receive Date: 20131029
  Receipt Date: 20131029
  Transmission Date: 20140711
  Serious: Yes (Death, Other)
  Sender: FDA-Public Use
  Company Number: US-GILEAD-2013-0083369

PATIENT
  Age: 34 Year
  Sex: Female

DRUGS (3)
  1. EMTRICITABINE [Suspect]
     Indication: HIV INFECTION
  2. TENOFOVIR DISOPROXIL FUMARATE [Suspect]
     Indication: HIV INFECTION
  3. ACETAMINOPHEN [Suspect]
     Indication: BACK PAIN
     Dosage: UNK, QD

REACTIONS (2)
  - Drug interaction [Fatal]
  - Lactic acidosis [Fatal]
